FAERS Safety Report 9960393 (Version 1)
Quarter: 2014Q1

REPORT INFORMATION
  Report Type: Spontaneous
  Country: US (occurrence: None)
  Receive Date: 20140304
  Receipt Date: 20140304
  Transmission Date: 20141002
  Serious: Yes (Death, Life-Threatening)
  Sender: FDA-Public Use
  Company Number: None

PATIENT
  Age: 82 Year
  Sex: Female

DRUGS (11)
  1. METFORMIN [Suspect]
     Route: 048
     Dates: start: 20130916, end: 20140225
  2. AMLODIPINE [Concomitant]
  3. ALPRAZOLAM [Concomitant]
  4. ASCORBIC ACID [Concomitant]
  5. IBUPROFEN [Concomitant]
  6. INSULIN [Concomitant]
  7. METOPROLOL [Concomitant]
  8. ONDANSETRON [Concomitant]
  9. SIMVASTATIN [Concomitant]
  10. VICODIN [Concomitant]
  11. ZINC [Concomitant]

REACTIONS (1)
  - Lactic acidosis [None]
